FAERS Safety Report 14870620 (Version 1)
Quarter: 2018Q2

REPORT INFORMATION
  Report Type: Spontaneous
  Country: FR (occurrence: FR)
  Receive Date: 20180509
  Receipt Date: 20180509
  Transmission Date: 20180711
  Serious: Yes (Disabling)
  Sender: FDA-Public Use
  Company Number: FR-PFIZER INC-2018185835

PATIENT
  Age: 15 Year
  Sex: Male
  Weight: 45.3 kg

DRUGS (5)
  1. CYTARABINE SANDOZ [Suspect]
     Active Substance: CYTARABINE
     Indication: BURKITT^S LYMPHOMA
     Dosage: 30 G, UNK
     Route: 024
     Dates: start: 20180301, end: 20180305
  2. METHOTREXATE MYLAN [Suspect]
     Active Substance: METHOTREXATE SODIUM
     Indication: BURKITT^S LYMPHOMA
     Dosage: 15 MG, UNK
     Route: 024
     Dates: start: 20180301, end: 20180305
  3. ENDOXAN /00021101/ [Suspect]
     Active Substance: CYCLOPHOSPHAMIDE
     Indication: BURKITT^S LYMPHOMA
     Dosage: 300 MG/M2, UNK (MILLIGRAM(S)/SQ. METER)
     Route: 042
     Dates: start: 20180301, end: 20180301
  4. VINCRISTINE HOSPIRA [Suspect]
     Active Substance: VINCRISTINE
     Indication: BURKITT^S LYMPHOMA
     Dosage: 1 MG/M2, UNK (MILLIGRAM(S)/SQ. METER)
     Route: 042
     Dates: start: 20180301, end: 20180301
  5. MABTHERA [Suspect]
     Active Substance: RITUXIMAB
     Indication: BURKITT^S LYMPHOMA
     Dosage: 375 MG/M2, UNK (MILLIGRAM(S)/SQ. METER)
     Route: 042
     Dates: start: 20180306, end: 20180308

REACTIONS (4)
  - Neuropathy peripheral [Recovered/Resolved]
  - Hyperaesthesia [Recovered/Resolved]
  - Paraesthesia [Recovered/Resolved]
  - Dysaesthesia [Recovered/Resolved]

NARRATIVE: CASE EVENT DATE: 20180309
